FAERS Safety Report 17697681 (Version 1)
Quarter: 2020Q2

REPORT INFORMATION
  Report Type: Spontaneous
  Country: US (occurrence: US)
  Receive Date: 20200422
  Receipt Date: 20200422
  Transmission Date: 20200714
  Serious: Yes (Death)
  Sender: FDA-Public Use
  Company Number: None

PATIENT
  Age: 78 Year
  Sex: Male

DRUGS (1)
  1. INTRON A [Suspect]
     Active Substance: INTERFERON ALFA-2B
     Indication: BLADDER CANCER
     Dosage: ?          OTHER STRENGTH:6MM UNITS/ML;OTHER DOSE:5 MU;OTHER ROUTE:INTRAVESICALLY?
     Dates: start: 20181024

REACTIONS (1)
  - Death [None]
